FAERS Safety Report 25616843 (Version 1)
Quarter: 2025Q3

REPORT INFORMATION
  Report Type: Spontaneous
  Country: US (occurrence: None)
  Receive Date: 20250726
  Receipt Date: 20250726
  Transmission Date: 20251020
  Serious: Yes (Death)
  Sender: FDA-CTU
  Company Number: None

PATIENT
  Age: 88 Year
  Sex: Female

DRUGS (2)
  1. TADALAFIL [Suspect]
     Active Substance: TADALAFIL
     Indication: Pulmonary arterial hypertension
     Dosage: FREQUENCY : DAILY;?
     Route: 048
     Dates: start: 20230523
  2. TYVASO [Suspect]
     Active Substance: TREPROSTINIL

REACTIONS (1)
  - Cardiac arrest [None]

NARRATIVE: CASE EVENT DATE: 20250725
